FAERS Safety Report 8888153 (Version 1)
Quarter: 2012Q4

REPORT INFORMATION
  Report Type: 
  Country: US (occurrence: US)
  Receive Date: 20121106
  Receipt Date: 20121106
  Transmission Date: 20130627
  Serious: No
  Sender: FDA-Public Use
  Company Number: US-009507513-1211USA000235

PATIENT
  Sex: Female
  Weight: 45.35 kg

DRUGS (1)
  1. NEXPLANON [Suspect]
     Indication: CONTRACEPTION
     Dosage: UNK
     Route: 065
     Dates: start: 20121025

REACTIONS (1)
  - Pain [Not Recovered/Not Resolved]
